FAERS Safety Report 6149933-9 (Version None)
Quarter: 2009Q2

REPORT INFORMATION
  Report Type: 
  Country: None (occurrence: None)
  Receive Date: 20090409
  Receipt Date: 20090401
  Transmission Date: 20091009
  Serious: Yes (Hospitalization, Other)
  Sender: FDA-Public Use
  Company Number: US-ELI_LILLY_AND_COMPANY-US200904000180

PATIENT
  Sex: Female

DRUGS (1)
  1. GLUCAGON [Suspect]
     Dates: start: 19990101

REACTIONS (2)
  - DIALYSIS [None]
  - KIDNEY TRANSPLANT REJECTION [None]
